FAERS Safety Report 11525464 (Version 1)
Quarter: 2015Q3

REPORT INFORMATION
  Report Type: Spontaneous
  Country: FR (occurrence: FR)
  Receive Date: 20150918
  Receipt Date: 20150918
  Transmission Date: 20151125
  Serious: Yes (Hospitalization)
  Sender: FDA-Public Use
  Company Number: FR-GLAXOSMITHKLINE-FR2015GSK133486

PATIENT
  Age: 19 Year
  Sex: Female

DRUGS (14)
  1. SPIRAMYCIN [Suspect]
     Active Substance: SPIRAMYCIN
     Indication: ODYNOPHAGIA
     Dosage: UNK
     Route: 048
     Dates: start: 20150324, end: 20150328
  2. POLERY [Suspect]
     Active Substance: CODEINE\SISYMBRIUM OFFICINALE WHOLE
     Indication: ODYNOPHAGIA
     Dosage: UNK
     Route: 048
     Dates: start: 20150324, end: 20150328
  3. ASPEGIC [Suspect]
     Active Substance: ASPIRIN DL-LYSINE
     Indication: PYREXIA
  4. PIVALONE [Suspect]
     Active Substance: TIXOCORTOL PIVALATE
     Indication: ODYNOPHAGIA
     Dosage: UNK
     Route: 045
     Dates: start: 20150324, end: 20150328
  5. LAMICTAL [Suspect]
     Active Substance: LAMOTRIGINE
     Dosage: UNK
     Route: 048
     Dates: start: 20150316, end: 20150329
  6. ELUDRIL [Suspect]
     Active Substance: CHLORHEXIDINE GLUCONATE\CHLOROBUTANOL
     Indication: ODYNOPHAGIA
     Dosage: UNK
     Route: 002
     Dates: start: 20150324, end: 20150328
  7. ELUDRIL [Suspect]
     Active Substance: CHLORHEXIDINE GLUCONATE\CHLOROBUTANOL
     Indication: PYREXIA
  8. POLERY [Suspect]
     Active Substance: CODEINE\SISYMBRIUM OFFICINALE WHOLE
     Indication: PYREXIA
  9. SERETIDE [Suspect]
     Active Substance: FLUTICASONE FUROATE\SALMETEROL XINAFOATE
     Indication: ODYNOPHAGIA
     Dosage: UNK
     Route: 055
     Dates: start: 20150324, end: 20150328
  10. DEPAKINE CHRONO [Concomitant]
     Active Substance: VALPROATE SODIUM
     Indication: EPILEPSY
     Dosage: LONG STANDING TREATMENT
  11. SERETIDE [Suspect]
     Active Substance: FLUTICASONE FUROATE\SALMETEROL XINAFOATE
     Indication: PYREXIA
  12. SPIRAMYCIN [Suspect]
     Active Substance: SPIRAMYCIN
     Indication: PYREXIA
  13. ASPEGIC [Suspect]
     Active Substance: ASPIRIN DL-LYSINE
     Indication: ODYNOPHAGIA
     Dosage: UNK
     Route: 048
     Dates: start: 20150324, end: 20150328
  14. PIVALONE [Suspect]
     Active Substance: TIXOCORTOL PIVALATE
     Indication: PYREXIA

REACTIONS (1)
  - Rash maculo-papular [Recovered/Resolved]

NARRATIVE: CASE EVENT DATE: 20150327
